FAERS Safety Report 11010250 (Version 1)
Quarter: 2015Q2

REPORT INFORMATION
  Report Type: Spontaneous
  Country: US (occurrence: US)
  Receive Date: 20150410
  Receipt Date: 20150410
  Transmission Date: 20150821
  Serious: Yes (Other)
  Sender: FDA-Public Use
  Company Number: US-ROXANE LABORATORIES, INC.-2015-RO-00588RO

PATIENT
  Age: 44 Year
  Sex: Male

DRUGS (4)
  1. DEXAMETHASONE. [Suspect]
     Active Substance: DEXAMETHASONE
     Indication: ACTH-PRODUCING PITUITARY TUMOUR
     Route: 065
  2. TEMOZOLOMIDE. [Suspect]
     Active Substance: TEMOZOLOMIDE
     Indication: ACTH-PRODUCING PITUITARY TUMOUR
     Route: 065
  3. CAPECITABINE. [Suspect]
     Active Substance: CAPECITABINE
     Indication: ACTH-PRODUCING PITUITARY TUMOUR
     Route: 065
  4. SANDOSTATIN LAR DEPOT [Concomitant]
     Active Substance: OCTREOTIDE ACETATE
     Indication: ACTH-PRODUCING PITUITARY TUMOUR
     Route: 065

REACTIONS (2)
  - Lymphopenia [Unknown]
  - Oral candidiasis [Unknown]
